FAERS Safety Report 9257145 (Version 2)
Quarter: 2013Q2

REPORT INFORMATION
  Report Type: Spontaneous
  Country: US (occurrence: None)
  Receive Date: 20130423
  Receipt Date: 20130522
  Transmission Date: 20140414
  Serious: Yes (Hospitalization)
  Sender: FDA-Public Use
  Company Number: 2013-0668

PATIENT
  Age: 65 Year
  Sex: Male
  Weight: 93 kg

DRUGS (11)
  1. CARFILZOMIB [Suspect]
     Indication: PLASMA CELL MYELOMA
     Route: 042
     Dates: start: 20130108
  2. ASPIRIN (ECOTRIN) (ACETYLSALICYLIC ACID) [Concomitant]
  3. ZOLEDRONIC ACID (ZOMETA) (ZOLENDRONIC ACID) (ZOLENDRONIC ACID) [Concomitant]
  4. ALBUTEROL (SALBUTAMOL) (SALBUTAMOL) [Concomitant]
  5. AMLODIPINE BESYLATE (AMLODIPINE BESILATE) (AMLODIPINE BESILATE) [Concomitant]
  6. ZEBETA (BISOPROLOL FUMURATE) (BISOPROLOL FUMARATE) [Concomitant]
  7. CALCIUM-VITAMIN D (COLECALCIFEROL) (COLECALCIFEROL) [Concomitant]
  8. FLUTICASONE-SALMETEROL (ADVAIR DISKUS) (SALMETEROL) (SALMETEROL) [Concomitant]
  9. IMMUNE GLOBULIN (HUMAN) (IMMUNOGLOBULINS NOS) (IMMUNOGLOBULINS NOS) [Concomitant]
  10. VALACYCLOVIR HCL (VALTREX) (VALACICLOVIR HYDROCHLORIDE) (VALACYCLOVIR HYDROCHLORIDE) [Concomitant]
  11. OMEPRAZOLE (OMEPRAZOLE SODIUM) (OMEPRAZOLE SODIUM) [Concomitant]

REACTIONS (8)
  - Upper-airway cough syndrome [None]
  - Dyspnoea exertional [None]
  - Cough [None]
  - Left atrial dilatation [None]
  - Sinus bradycardia [None]
  - Electrocardiogram QT prolonged [None]
  - Haematocrit decreased [None]
  - Hypoxia [None]
